FAERS Safety Report 8943814 (Version 3)
Quarter: 2013Q1

REPORT INFORMATION
  Report Type: Spontaneous
  Country: JP (occurrence: JP)
  Receive Date: 20121204
  Receipt Date: 20130121
  Transmission Date: 20140127
  Serious: Yes (Hospitalization, Other)
  Sender: FDA-Public Use
  Company Number: PHHY2012JP109897

PATIENT
  Sex: Male

DRUGS (8)
  1. VOLTAREN [Suspect]
     Indication: PAIN IN EXTREMITY
     Dosage: 250 MG (10 TABLETS OF 25 MG)
     Route: 048
     Dates: start: 20100708
  2. VOLTAREN [Suspect]
     Indication: MUSCULOSKELETAL PAIN
     Dosage: 250 MG (10 TABLETS OF 25 MG)
     Route: 048
     Dates: start: 20100709
  3. VOLTAREN [Suspect]
     Dosage: 125 MG (5 TABLETS OF 25 MG)
     Route: 048
  4. VOLTAREN [Suspect]
     Dosage: 250 MG, (10 TABLETS OF 25 MG)
     Route: 048
     Dates: start: 20100716
  5. VOLTAREN [Suspect]
     Dosage: 250 MG, (10 TABLETS OF 25 MG)
     Route: 048
     Dates: start: 20100723
  6. VOLTAREN [Suspect]
     Dosage: 250 MG, (10 TABLETS OF 25 MG)
     Route: 048
     Dates: start: 20100730
  7. VOLTAREN [Suspect]
     Dosage: 500 MG, (20 TABLETS OF 25 MG)
     Route: 048
     Dates: start: 20100813
  8. LOXONIN [Concomitant]

REACTIONS (6)
  - Renal failure chronic [Not Recovered/Not Resolved]
  - Glomerulonephritis chronic [Not Recovered/Not Resolved]
  - Nephrotic syndrome [Not Recovered/Not Resolved]
  - Nephritis [Not Recovered/Not Resolved]
  - Oedema peripheral [Unknown]
  - Overdose [Unknown]
